FAERS Safety Report 9562846 (Version 6)
Quarter: 2015Q2

REPORT INFORMATION
  Report Type: Spontaneous
  Country: US (occurrence: US)
  Receive Date: 20130927
  Receipt Date: 20150601
  Transmission Date: 20150821
  Serious: Yes (Death, Life-Threatening, Hospitalization, Disabling, Other)
  Sender: FDA-Public Use
  Company Number: US-MERCK-1309USA012823

PATIENT
  Sex: Male
  Weight: 129.25 kg

DRUGS (7)
  1. JANUVIA [Suspect]
     Active Substance: SITAGLIPTIN PHOSPHATE
     Dosage: 100 MG, QD
     Route: 048
     Dates: start: 20111105, end: 20120204
  2. ACTOS [Concomitant]
     Active Substance: PIOGLITAZONE HYDROCHLORIDE
     Indication: TYPE 2 DIABETES MELLITUS
  3. LANTUS [Concomitant]
     Active Substance: INSULIN GLARGINE
     Indication: TYPE 2 DIABETES MELLITUS
  4. JANUVIA [Suspect]
     Active Substance: SITAGLIPTIN PHOSPHATE
     Indication: TYPE 2 DIABETES MELLITUS
     Dosage: 100 MG, QD
     Route: 048
     Dates: start: 20091113, end: 20110701
  5. NOVOLOG [Concomitant]
     Active Substance: INSULIN ASPART
     Indication: TYPE 2 DIABETES MELLITUS
  6. METFORMIN [Concomitant]
     Active Substance: METFORMIN HYDROCHLORIDE
     Indication: TYPE 2 DIABETES MELLITUS
     Dosage: 1000 MG, BID
     Route: 048
  7. ASPIRIN. [Concomitant]
     Active Substance: ASPIRIN
     Indication: CEREBROVASCULAR ACCIDENT PROPHYLAXIS
     Dosage: UNK
     Dates: start: 2009

REACTIONS (42)
  - Explorative laparotomy [Unknown]
  - Bile duct adenocarcinoma [Unknown]
  - Hepatic lesion [Unknown]
  - Tendonitis [Unknown]
  - Death [Fatal]
  - Hepatic enzyme increased [Recovering/Resolving]
  - Dehydration [Unknown]
  - Retinal scar [Unknown]
  - Refraction disorder [Recovered/Resolved]
  - Hyperlipidaemia [Unknown]
  - Biliary neoplasm [Unknown]
  - Bile duct stent insertion [Unknown]
  - Gastric ulcer [Unknown]
  - Neuropathy peripheral [Unknown]
  - Gastrointestinal neoplasm [Unknown]
  - Erectile dysfunction [Unknown]
  - Headache [Unknown]
  - Herpes simplex [Unknown]
  - Constipation [Unknown]
  - Pancreatic carcinoma stage III [Not Recovered/Not Resolved]
  - Liver operation [Unknown]
  - Biliary sphincterotomy [Unknown]
  - Obstruction gastric [Unknown]
  - Night blindness [Unknown]
  - Anaemia [Unknown]
  - Bile duct stenosis [Unknown]
  - Central venous catheterisation [Unknown]
  - Eye haemorrhage [Unknown]
  - Bile duct stent insertion [Unknown]
  - Stent placement [Unknown]
  - Stent placement [Unknown]
  - Bile duct stent insertion [Unknown]
  - Duodenal operation [Unknown]
  - Blood glucose increased [Unknown]
  - Skin exfoliation [Unknown]
  - Radiotherapy [Unknown]
  - Hyperglycaemia [Unknown]
  - Hyperbilirubinaemia [Unknown]
  - Thyroid neoplasm [Unknown]
  - Essential hypertension [Unknown]
  - Blood glucose increased [Unknown]
  - Blood creatinine increased [Recovering/Resolving]

NARRATIVE: CASE EVENT DATE: 201111
